FAERS Safety Report 25409365 (Version 2)
Quarter: 2025Q2

REPORT INFORMATION
  Report Type: Spontaneous
  Country: BE (occurrence: BE)
  Receive Date: 20250607
  Receipt Date: 20250612
  Transmission Date: 20250716
  Serious: Yes (Hospitalization, Other)
  Sender: AMGEN
  Company Number: BE-BAXTER-2025BAX015798

PATIENT
  Age: 42 Year
  Sex: Female
  Weight: 50.4 kg

DRUGS (9)
  1. BEVACIZUMAB [Suspect]
     Active Substance: BEVACIZUMAB
     Indication: Ovarian cancer
     Dosage: 10 MILLIGRAM/KILOGRAM, Q2WK
     Route: 040
     Dates: start: 20250103
  2. DOXORUBICIN [Suspect]
     Active Substance: DOXORUBICIN
     Indication: Ovarian cancer
     Dosage: 30 MG/M2, EVERY 4 WK,
     Route: 040
     Dates: start: 20250103
  3. DOXORUBICIN [Suspect]
     Active Substance: DOXORUBICIN
     Dosage: 24 MG/M2, EVERY 4 WK
     Route: 040
     Dates: start: 20250306
  4. MIRVETUXIMAB SORAVTANSINE [Suspect]
     Active Substance: MIRVETUXIMAB SORAVTANSINE
     Indication: Ovarian cancer
  5. CARBOPLATIN [Suspect]
     Active Substance: CARBOPLATIN
     Indication: Ovarian cancer
     Route: 040
     Dates: start: 20250306
  6. CARBOPLATIN [Suspect]
     Active Substance: CARBOPLATIN
     Route: 040
     Dates: start: 20250103
  7. DAFALGAN [Concomitant]
     Active Substance: ACETAMINOPHEN
     Indication: Abdominal pain
     Route: 065
     Dates: start: 20241129
  8. Romy [Concomitant]
     Indication: Thrombocytopenia
     Route: 065
     Dates: start: 20250117, end: 20250131
  9. Romy [Concomitant]
     Dosage: 49 MG, EVERY 2 WK
     Route: 065
     Dates: start: 20250206

REACTIONS (2)
  - Anaemia [Recovered/Resolved]
  - Thrombocytopenia [Recovered/Resolved]

NARRATIVE: CASE EVENT DATE: 20250222
